FAERS Safety Report 14015397 (Version 13)
Quarter: 2021Q1

REPORT INFORMATION
  Report Type: Report from Study
  Country: ZA (occurrence: ZA)
  Receive Date: 20170927
  Receipt Date: 20210319
  Transmission Date: 20210419
  Serious: Yes (Hospitalization, Disabling, Other)
  Sender: FDA-Public Use
  Company Number: PHHY2016ZA090758

PATIENT
  Age: 47 Year
  Sex: Female

DRUGS (10)
  1. PULMISON [Concomitant]
     Active Substance: PREDNISONE
     Indication: PRODUCT USED FOR UNKNOWN INDICATION
     Dosage: UNK
     Route: 065
  2. TUVIGIN [Suspect]
     Active Substance: FINGOLIMOD HYDROCHLORIDE
     Dosage: 0.5 MG, QD
     Route: 048
     Dates: start: 20160627
  3. BACLOFEN. [Concomitant]
     Active Substance: BACLOFEN
     Indication: PRODUCT USED FOR UNKNOWN INDICATION
     Dosage: 1 DF, BID
     Route: 065
  4. TUVIGIN [Suspect]
     Active Substance: FINGOLIMOD HYDROCHLORIDE
     Dosage: 0.5 MG, QD
     Route: 048
  5. TUVIGIN [Suspect]
     Active Substance: FINGOLIMOD HYDROCHLORIDE
     Dosage: 0.5 MG, QD
     Route: 048
  6. WELLBUTRIN [Concomitant]
     Active Substance: BUPROPION HYDROCHLORIDE
     Indication: PRODUCT USED FOR UNKNOWN INDICATION
     Dosage: 150 MG, QD
     Route: 065
  7. TUVIGIN [Suspect]
     Active Substance: FINGOLIMOD HYDROCHLORIDE
     Dosage: 0.5 MG, QD
     Route: 048
  8. TUVIGIN [Suspect]
     Active Substance: FINGOLIMOD HYDROCHLORIDE
     Dosage: 0.5 MG, QD
     Route: 048
  9. DETRUSITOL [Concomitant]
     Active Substance: TOLTERODINE TARTRATE
     Indication: PRODUCT USED FOR UNKNOWN INDICATION
     Dosage: 4 MG, QD
     Route: 065
  10. TUVIGIN [Suspect]
     Active Substance: FINGOLIMOD HYDROCHLORIDE
     Indication: RELAPSING-REMITTING MULTIPLE SCLEROSIS
     Dosage: 0.5 MG, QD
     Route: 048
     Dates: start: 20160626

REACTIONS (33)
  - Multiple sclerosis [Recovered/Resolved]
  - Muscular weakness [Recovered/Resolved]
  - Decreased vibratory sense [Unknown]
  - Eye pain [Unknown]
  - Heart rate irregular [Recovering/Resolving]
  - Limb discomfort [Unknown]
  - Muscular weakness [Unknown]
  - Hemiparesis [Unknown]
  - Pain in extremity [Recovering/Resolving]
  - Asthenia [Not Recovered/Not Resolved]
  - Multiple sclerosis relapse [Recovering/Resolving]
  - Intention tremor [Unknown]
  - Dysstasia [Unknown]
  - Gait disturbance [Not Recovered/Not Resolved]
  - Hemianaesthesia [Unknown]
  - Spinal compression fracture [Unknown]
  - Hip fracture [Unknown]
  - Eye pruritus [Unknown]
  - Visual impairment [Unknown]
  - Urinary tract infection [Unknown]
  - Vision blurred [Recovering/Resolving]
  - Paraesthesia [Unknown]
  - Lacrimation increased [Unknown]
  - Blood pressure fluctuation [Recovering/Resolving]
  - Ocular hyperaemia [Unknown]
  - Balance disorder [Recovered/Resolved]
  - Balance disorder [Unknown]
  - Vitreous floaters [Recovering/Resolving]
  - Optic atrophy [Unknown]
  - Nystagmus [Unknown]
  - Ataxia [Unknown]
  - Skin abrasion [Unknown]
  - Fatigue [Recovering/Resolving]

NARRATIVE: CASE EVENT DATE: 20160628
